FAERS Safety Report 8237785-2 (Version None)
Quarter: 2012Q1

REPORT INFORMATION
  Report Type: 
  Country: None (occurrence: None)
  Receive Date: 20120309
  Receipt Date: 20101207
  Transmission Date: 20120608
  Serious: Yes (Other)
  Sender: FDA-Public Use
  Company Number: PHHY2010US38241

PATIENT
  Age: 55 Year
  Sex: Female
  Weight: 113.4 kg

DRUGS (11)
  1. HYDROCHLOROTHIAZIDE [Concomitant]
  2. OMEPRAZOLE [Concomitant]
  3. BACLOFEN [Concomitant]
  4. GABAPENTIN [Concomitant]
  5. CLARITIN [Concomitant]
  6. EXTAVIA [Suspect]
     Indication: MULTIPLE SCLEROSIS
     Dosage: 0.25 MG, QOD, SUBCUTANEOUS 0.187 MG, QOD, SUBCUTANEOUS
     Route: 058
     Dates: start: 20100501
  7. EXTAVIA [Suspect]
     Indication: MULTIPLE SCLEROSIS
     Dosage: 0.25 MG, QOD, SUBCUTANEOUS 0.187 MG, QOD, SUBCUTANEOUS
     Route: 058
     Dates: start: 20100610, end: 20101117
  8. EXTAVIA [Suspect]
     Indication: MULTIPLE SCLEROSIS
     Dosage: 0.25 MG, QOD, SUBCUTANEOUS 0.187 MG, QOD, SUBCUTANEOUS
     Route: 058
     Dates: start: 20101118
  9. EXTAVIA [Suspect]
     Indication: MULTIPLE SCLEROSIS
     Dosage: 0.25 MG, QOD, SUBCUTANEOUS 0.187 MG, QOD, SUBCUTANEOUS
     Route: 058
     Dates: start: 20100608
  10. KLOREAN [Concomitant]
  11. LEVOTHYROID (LEVOTHYROXINE SODIUM) [Concomitant]

REACTIONS (5)
  - LIVER FUNCTION TEST ABNORMAL [None]
  - ALANINE AMINOTRANSFERASE INCREASED [None]
  - ALOPECIA [None]
  - CHILLS [None]
  - ASPARTATE AMINOTRANSFERASE INCREASED [None]
